FAERS Safety Report 13716495 (Version 1)
Quarter: 2017Q3

REPORT INFORMATION
  Report Type: Spontaneous
  Country: US (occurrence: US)
  Receive Date: 20170703
  Receipt Date: 20170703
  Transmission Date: 20171127
  Serious: Yes (Life-Threatening, Hospitalization)
  Sender: FDA-Public Use
  Company Number: None

PATIENT
  Age: 76 Year
  Sex: Male
  Weight: 114 kg

DRUGS (1)
  1. WARFARIN [Suspect]
     Active Substance: WARFARIN
     Indication: ATRIAL FIBRILLATION
     Route: 048
     Dates: start: 20130920, end: 20161214

REACTIONS (5)
  - Confusional state [None]
  - Haemorrhage [None]
  - Syncope [None]
  - Dizziness [None]
  - Haemorrhage intracranial [None]

NARRATIVE: CASE EVENT DATE: 20161214
